FAERS Safety Report 5353491-6 (Version None)
Quarter: 2007Q2

REPORT INFORMATION
  Report Type: 
  Country: None (occurrence: None)
  Receive Date: 20070612
  Receipt Date: 20070531
  Transmission Date: 20071010
  Serious: Yes (Hospitalization)
  Sender: FDA-Public Use
  Company Number: FR-BAYER-200710041BFR

PATIENT
  Age: 42 Year
  Sex: Female

DRUGS (14)
  1. ADALATE LP [Suspect]
     Indication: THREATENED LABOUR
     Dosage: TOTAL DAILY DOSE: 20 MG  UNIT DOSE: 20 MG
     Route: 048
     Dates: start: 20061222, end: 20061222
  2. ADALATE LP [Suspect]
     Dosage: TOTAL DAILY DOSE: 20 MG  UNIT DOSE: 20 MG
     Route: 048
     Dates: start: 20061224, end: 20061224
  3. ADALAT [Suspect]
     Indication: UTERINE CONTRACTIONS DURING PREGNANCY
     Dosage: AS USED: 10 MG  UNIT DOSE: 10 MG
     Route: 048
     Dates: start: 20061224, end: 20061224
  4. LEVOTHYROXINE SODIUM [Concomitant]
     Indication: HYPOTHYROIDISM
     Route: 065
  5. SALBUMOL [Concomitant]
     Indication: UNEVALUABLE EVENT
     Route: 054
  6. CELESTENE [Concomitant]
     Indication: UNEVALUABLE EVENT
     Dosage: TOTAL DAILY DOSE: 12 MG  UNIT DOSE: 12 MG
     Route: 030
     Dates: start: 20061222, end: 20061223
  7. TRACTOCILE [Concomitant]
     Indication: UTERINE CONTRACTIONS DURING PREGNANCY
     Route: 042
     Dates: start: 20061222, end: 20061223
  8. TRACTOCILE [Concomitant]
     Route: 042
     Dates: start: 20061224
  9. DOLIPRANE [Concomitant]
     Indication: HEADACHE
     Route: 048
     Dates: start: 20061222, end: 20061224
  10. CLAMOXYL [Concomitant]
     Indication: UNEVALUABLE EVENT
     Route: 048
     Dates: start: 20061222, end: 20061224
  11. STILNOX [Concomitant]
     Route: 048
     Dates: start: 20061224, end: 20061224
  12. STILNOX [Concomitant]
     Route: 048
     Dates: start: 20061222, end: 20061222
  13. ALUMINUM HYDROXIDE AND MAGNESIUM TRISILICATE [Concomitant]
     Indication: DIARRHOEA
     Route: 065
  14. MUCOMYST [Concomitant]
     Indication: UNEVALUABLE EVENT
     Route: 048
     Dates: start: 20061223, end: 20061223

REACTIONS (9)
  - ABDOMINAL PAIN UPPER [None]
  - ACUTE PULMONARY OEDEMA [None]
  - DRUG EXPOSURE DURING PREGNANCY [None]
  - DYSPNOEA [None]
  - OXYGEN SATURATION DECREASED [None]
  - PROTEINURIA [None]
  - RALES [None]
  - SINUS TACHYCARDIA [None]
  - TACHYPNOEA [None]
